FAERS Safety Report 5402768-4 (Version None)
Quarter: 2007Q3

REPORT INFORMATION
  Report Type: 
  Country: None (occurrence: None)
  Receive Date: 20070801
  Receipt Date: 20070727
  Transmission Date: 20080115
  Serious: Yes (Other)
  Sender: FDA-Public Use
  Company Number: GBWYE099027JUL07

PATIENT
  Age: 30 Year
  Sex: Female

DRUGS (1)
  1. ANADIN IBUPROFEN [Suspect]
     Dosage: 2 DOSES TOTALLING 400MG
     Route: 048
     Dates: start: 20070719, end: 20070719

REACTIONS (2)
  - HYPOAESTHESIA FACIAL [None]
  - SWELLING FACE [None]
